FAERS Safety Report 21086762 (Version 2)
Quarter: 2022Q3

REPORT INFORMATION
  Report Type: Spontaneous
  Country: AR (occurrence: AR)
  Receive Date: 20220715
  Receipt Date: 20220822
  Transmission Date: 20221027
  Serious: Yes (Other)
  Sender: FDA-Public Use
  Company Number: AR-PFIZER INC-202200813640

PATIENT
  Age: 75 Year
  Sex: Male

DRUGS (2)
  1. ENBREL [Suspect]
     Active Substance: ETANERCEPT
     Indication: Rheumatoid arthritis
     Dosage: 50 MILLIGRAM, WEEKLY
     Route: 065
     Dates: start: 20170224
  2. ENBREL [Suspect]
     Active Substance: ETANERCEPT
     Dosage: 50 MILLIGRAM EVERY 10 DAYS
     Route: 065

REACTIONS (7)
  - Injection site haemorrhage [Not Recovered/Not Resolved]
  - Device difficult to use [Not Recovered/Not Resolved]
  - Device mechanical issue [Not Recovered/Not Resolved]
  - Therapy interrupted [Unknown]
  - Off label use [Not Recovered/Not Resolved]
  - Product storage error [Not Recovered/Not Resolved]
  - Memory impairment [Not Recovered/Not Resolved]

NARRATIVE: CASE EVENT DATE: 20220630
